FAERS Safety Report 9282133 (Version 1)
Quarter: 2013Q2

REPORT INFORMATION
  Report Type: Spontaneous
  Country: US (occurrence: None)
  Receive Date: 20130508
  Receipt Date: 20130508
  Transmission Date: 20140414
  Serious: Yes (Other)
  Sender: FDA-Public Use
  Company Number: None

PATIENT
  Age: 69 None
  Sex: Male
  Weight: 83.9 kg

DRUGS (1)
  1. PHENYTOIN [Suspect]
     Indication: CONVULSION
     Route: 048

REACTIONS (5)
  - Mental status changes [None]
  - Anticonvulsant drug level above therapeutic [None]
  - Somnolence [None]
  - Confusional state [None]
  - Asthenia [None]
